FAERS Safety Report 7440779-8 (Version None)
Quarter: 2011Q2

REPORT INFORMATION
  Report Type: 
  Country: None (occurrence: None)
  Receive Date: 20110427
  Receipt Date: 20110425
  Transmission Date: 20111010
  Serious: Yes (Other)
  Sender: FDA-Public Use
  Company Number: BR-PFIZER INC-2009308783

PATIENT
  Age: 29 Year
  Sex: Female
  Weight: 130 kg

DRUGS (16)
  1. FLUOXETINE [Concomitant]
     Dosage: 20 MG, UNK
     Dates: start: 20090101
  2. CLONAZEPAM [Concomitant]
     Dosage: UNK
     Dates: start: 20100101, end: 20100101
  3. CHLORPROMAZINE [Concomitant]
     Dosage: UNK
  4. NEOZINE [Concomitant]
     Dosage: UNK
     Dates: start: 20100101
  5. GEODON [Suspect]
     Dosage: 80 MG, 1X/DAY
     Route: 048
     Dates: start: 20101129
  6. FLUOXETINE [Concomitant]
     Indication: DEPRESSION
     Dosage: 20 MG, UNK
     Dates: end: 20010101
  7. SERTRALINE [Concomitant]
     Indication: DEPRESSION
     Dosage: 50 MG, UNK
     Dates: start: 20090101
  8. CHLORPROMAZINE [Concomitant]
     Dosage: UNK
     Dates: start: 20100101, end: 20100101
  9. GEODON [Suspect]
     Dosage: 120MG (1 CAPSULE OF 40 MG PLUS 1 CAPSULE OF 80 MG AT NIGHT), DAILY
     Route: 048
     Dates: start: 20090101
  10. GEODON [Suspect]
     Dosage: 120 MG, 1X/DAY
     Route: 048
  11. DIAZEPAM [Concomitant]
     Dosage: 2 MG, UNK
     Dates: start: 20100301
  12. GEODON [Suspect]
     Indication: SCHIZOPHRENIA
     Dosage: 40 MG, TWO TABLETS, 2X/DAY, EVERY 12 HOURS
     Route: 048
     Dates: start: 20080101
  13. GEODON [Suspect]
     Dosage: 40 MG, 1 CAPSULE EACH TWELVE HOURS
  14. PHENERGAN [Concomitant]
     Dosage: UNK
     Dates: start: 20100101
  15. DIAZEPAM [Concomitant]
     Indication: INSOMNIA
     Dosage: 10 MG, UNK
     Dates: start: 20090101
  16. NEULEPTIL [Concomitant]
     Dosage: UNK

REACTIONS (19)
  - SOCIAL FEAR [None]
  - INSOMNIA [None]
  - DRUG DEPENDENCE [None]
  - HYPERTENSION [None]
  - WEIGHT INCREASED [None]
  - EUPHORIC MOOD [None]
  - AMENORRHOEA [None]
  - INCREASED APPETITE [None]
  - DRUG INEFFECTIVE [None]
  - FEAR OF FALLING [None]
  - IMPATIENCE [None]
  - CONFUSIONAL STATE [None]
  - MALAISE [None]
  - PANIC DISORDER [None]
  - INFERTILITY FEMALE [None]
  - DEPRESSED MOOD [None]
  - AGITATION [None]
  - NERVOUSNESS [None]
  - FEELING ABNORMAL [None]
